FAERS Safety Report 24184343 (Version 1)
Quarter: 2024Q3

REPORT INFORMATION
  Report Type: Spontaneous
  Country: US (occurrence: None)
  Receive Date: 20240807
  Receipt Date: 20240807
  Transmission Date: 20241017
  Serious: No
  Sender: Public
  Company Number: None

PATIENT
  Age: 62 Year
  Sex: Male
  Weight: 137 kg

DRUGS (2)
  1. SPRYCEL [Suspect]
     Active Substance: DASATINIB
     Dates: start: 20230818, end: 20240711
  2. PEMBROLIZUMAB [Concomitant]
     Active Substance: PEMBROLIZUMAB
     Dates: end: 20240628

REACTIONS (1)
  - Basal cell carcinoma [None]

NARRATIVE: CASE EVENT DATE: 20240712
